FAERS Safety Report 9305733 (Version 2)
Quarter: 2013Q2

REPORT INFORMATION
  Report Type: Report from Study
  Country: US (occurrence: US)
  Receive Date: 20130523
  Receipt Date: 20130605
  Transmission Date: 20140414
  Serious: Yes (Hospitalization)
  Sender: FDA-Public Use
  Company Number: US-ACTELION-A-NJ2013-83533

PATIENT
  Age: 46 Year
  Sex: Male

DRUGS (3)
  1. VELETRI [Suspect]
     Indication: PULMONARY ARTERIAL HYPERTENSION
     Dosage: 15 NG/KG, PER MIN
     Route: 041
     Dates: start: 20101208, end: 20130326
  2. SILDENAFIL [Concomitant]
  3. TYVASO [Concomitant]

REACTIONS (2)
  - Hypertension [Unknown]
  - Loss of consciousness [Unknown]
